FAERS Safety Report 9774145 (Version 1)
Quarter: 2013Q4

REPORT INFORMATION
  Report Type: Report from Study
  Country: US (occurrence: US)
  Receive Date: 20131220
  Receipt Date: 20131220
  Transmission Date: 20140711
  Serious: Yes (Other)
  Sender: FDA-Public Use
  Company Number: US-ROCHE-1319334

PATIENT
  Sex: Male
  Weight: 20.2 kg

DRUGS (3)
  1. NUTROPIN AQ [Suspect]
     Indication: BODY HEIGHT BELOW NORMAL
     Route: 058
     Dates: end: 20131021
  2. NUTROPIN AQ [Suspect]
     Route: 058
     Dates: start: 20131021
  3. FOCALIN XR [Concomitant]
     Route: 065

REACTIONS (1)
  - Speech disorder developmental [Unknown]
